FAERS Safety Report 8300485 (Version 2)
Quarter: 2012Q4

REPORT INFORMATION
  Report Type: 
  Country: US (occurrence: US)
  Receive Date: 20111219
  Receipt Date: 20121026
  Transmission Date: 20130627
  Serious: No
  Sender: FDA-Public Use
  Company Number: US-ASTRAZENECA-2011SE16463

PATIENT
  Age: 85 Year
  Sex: Female

DRUGS (3)
  1. CRESTOR [Suspect]
     Route: 048
     Dates: end: 201101
  2. CRESTOR [Suspect]
     Route: 048
  3. CRESTOR [Suspect]
     Route: 048
     Dates: end: 201101

REACTIONS (8)
  - Gait disturbance [Unknown]
  - Back pain [Unknown]
  - Adverse event [Unknown]
  - Back disorder [Unknown]
  - Sleep disorder due to general medical condition, insomnia type [Unknown]
  - Low density lipoprotein increased [Unknown]
  - Myalgia [Unknown]
  - Drug dose omission [Unknown]
